FAERS Safety Report 18138713 (Version 2)
Quarter: 2020Q4

REPORT INFORMATION
  Report Type: Spontaneous
  Country: US (occurrence: US)
  Receive Date: 20200812
  Receipt Date: 20201007
  Transmission Date: 20210113
  Serious: No
  Sender: FDA-Public Use
  Company Number: US-JNJFOC-20200801155

PATIENT
  Age: 62 Year
  Sex: Female
  Weight: 61.29 kg

DRUGS (3)
  1. WOMENS ROGAINE UNSCENTED [Suspect]
     Active Substance: MINOXIDIL
     Indication: ALOPECIA
     Dosage: DOSE AND FREQUENCY: HALF A CAPFUL ONCE (ONCE DAILY)?PRODUCT WAS LAST ADMINISTERED ON /JUN/2020
     Route: 061
     Dates: start: 202001
  2. MOBIC [Concomitant]
     Active Substance: MELOXICAM
     Indication: PRODUCT USED FOR UNKNOWN INDICATION
     Route: 065
  3. WOMENS ROGAINE UNSCENTED [Suspect]
     Active Substance: MINOXIDIL
     Dosage: HALF A CAPFUL?PRODUCT WAS LAST ADMINISTERED ON JAN/2020
     Route: 061
     Dates: start: 202001, end: 2020

REACTIONS (1)
  - Drug ineffective [Unknown]
